FAERS Safety Report 20812307 (Version 2)
Quarter: 2022Q2

REPORT INFORMATION
  Report Type: Spontaneous
  Country: US (occurrence: US)
  Receive Date: 20220511
  Receipt Date: 20220517
  Transmission Date: 20220721
  Serious: No
  Sender: FDA-Public Use
  Company Number: US-ORGANON-O2205USA000621

PATIENT
  Age: 78 Year
  Sex: Female

DRUGS (1)
  1. ASMANEX HFA [Suspect]
     Active Substance: MOMETASONE FUROATE
     Dosage: 2 PUFFS ONCE A DAY, 120 DOSES
     Dates: start: 20220503

REACTIONS (3)
  - Device malfunction [Unknown]
  - Poor quality device used [Unknown]
  - No adverse event [Unknown]

NARRATIVE: CASE EVENT DATE: 20220504
